FAERS Safety Report 8844753 (Version 1)
Quarter: 2012Q4

REPORT INFORMATION
  Report Type: Spontaneous
  Country: US (occurrence: None)
  Receive Date: 20121016
  Receipt Date: 20121016
  Transmission Date: 20130627
  Serious: Yes (Other)
  Sender: FDA-Public Use
  Company Number: 2012033553

PATIENT
  Sex: Female
  Weight: 40.82 kg

DRUGS (19)
  1. HIZENTRA [Suspect]
     Indication: IMMUNODEFICIENCY COMMON VARIABLE
     Route: 058
     Dates: start: 20121003, end: 2012
  2. HIZENTRA [Suspect]
     Indication: IMMUNODEFICIENCY COMMON VARIABLE
     Dosage: 7 g  1x/week, 4 sites over 1-2 hours subcutaneous
     Route: 058
     Dates: start: 20121003
  3. HIZENTRA [Suspect]
     Indication: IMMUNODEFICIENCY COMMON VARIABLE
     Route: 058
  4. EPI-PEN	(EPINEPHRINE HYDROCHLORIDE) [Concomitant]
  5. ZYPREXA	(OLANZAPINE) [Concomitant]
  6. ASTELIN	(DIPROPHYLLINE) [Concomitant]
  7. FLUTICASONE (FLUTICASONE) [Concomitant]
  8. SYNTHROID (LEVOTHYROXINE SODIUM) [Concomitant]
  9. CLONAZEPAM (CLONAZEPAM) [Concomitant]
  10. SULFAMETHOXAZOLE (SULFAMETHOXAZOLE) [Concomitant]
  11. PULMICORT (BUDESONIDE) [Concomitant]
  12. CLONIDINE (CLONIDINE) [Concomitant]
  13. ALBUTEROL (SALBUTAMOL) [Concomitant]
  14. HYDROXYZINE (HYDROXYZINE) [Concomitant]
  15. MELATONIN (MELATONIN) [Concomitant]
  16. PREVACID (LANSOPRAZOLE) [Concomitant]
  17. ROBINUL (GLYCOPYRRONIUM BROMIDE) [Concomitant]
  18. METOCLOPRAMIDE (METOCLOPRAMIDE) [Concomitant]
  19. LUVOX (FLUVOXAMINE MALEATE) [Concomitant]

REACTIONS (4)
  - Pain in extremity [None]
  - Weight bearing difficulty [None]
  - Abasia [None]
  - Oedema peripheral [None]
